FAERS Safety Report 6523271-4 (Version None)
Quarter: 2009Q4

REPORT INFORMATION
  Report Type: 
  Country: None (occurrence: None)
  Receive Date: 20091231
  Receipt Date: 20091222
  Transmission Date: 20100525
  Serious: Yes (Death, Life-Threatening)
  Sender: FDA-Public Use
  Company Number: DK-ASTRAZENECA-2008SE01304

PATIENT
  Age: 434 Month
  Sex: Female
  Weight: 94 kg

DRUGS (6)
  1. SEROQUEL [Suspect]
     Indication: MENTAL DISORDER
     Route: 048
     Dates: start: 20030101
  2. CITALOPRAM HYDROBROMIDE [Interacting]
     Indication: DEPRESSION
     Route: 048
     Dates: start: 20010601, end: 20030101
  3. CITALOPRAM HYDROBROMIDE [Interacting]
     Route: 048
     Dates: start: 20030101
  4. DELEPSINE [Interacting]
     Indication: EPILEPSY
     Route: 048
     Dates: start: 20030101
  5. LAMICTAL [Interacting]
     Indication: EPILEPSY
     Route: 048
     Dates: start: 20030101
  6. MINULET [Interacting]
     Indication: CONTRACEPTION
     Route: 048
     Dates: start: 20030101

REACTIONS (3)
  - DRUG INTERACTION [None]
  - DRUG TOXICITY [None]
  - ENCEPHALITIS [None]
